FAERS Safety Report 9688955 (Version 1)
Quarter: 2013Q4

REPORT INFORMATION
  Report Type: Spontaneous
  Country: US (occurrence: US)
  Receive Date: 20131114
  Receipt Date: 20131114
  Transmission Date: 20140711
  Serious: Yes (Hospitalization)
  Sender: FDA-Public Use
  Company Number: US-GLAXOSMITHKLINE-A1049194A

PATIENT
  Age: 57 Year
  Sex: Male

DRUGS (2)
  1. VENTOLIN [Suspect]
     Indication: BRONCHITIS CHRONIC
     Route: 065
  2. ADVAIR [Concomitant]

REACTIONS (3)
  - Nasal mucosal discolouration [Unknown]
  - Productive cough [Unknown]
  - Alcohol use [Unknown]
